FAERS Safety Report 15451651 (Version 1)
Quarter: 2018Q4

REPORT INFORMATION
  Report Type: Spontaneous
  Country: RO (occurrence: RO)
  Receive Date: 20181001
  Receipt Date: 20181001
  Transmission Date: 20190204
  Serious: Yes (Death)
  Sender: FDA-Public Use
  Company Number: RO-PFIZER INC-2018394464

PATIENT
  Age: 97 Year
  Sex: Male
  Weight: 73 kg

DRUGS (4)
  1. SINTROM [Concomitant]
     Active Substance: ACENOCOUMAROL
     Dosage: 2 MG, 1X/DAY, IN THE EVENING
  2. SILIMARINA [Concomitant]
     Dosage: UNK UNK, 1X/DAY, IN THE EVENING
  3. EUTHYROX [Concomitant]
     Active Substance: LEVOTHYROXINE SODIUM
     Dosage: 150 UG, 1X/DAY, IN THE MORNING
  4. SUTENT [Suspect]
     Active Substance: SUNITINIB MALATE
     Indication: RENAL CANCER
     Dosage: 50
     Dates: end: 20180915

REACTIONS (1)
  - Death [Fatal]

NARRATIVE: CASE EVENT DATE: 20180915
